FAERS Safety Report 5218987-6 (Version None)
Quarter: 2007Q1

REPORT INFORMATION
  Report Type: 
  Country: None (occurrence: None)
  Receive Date: 20070122
  Receipt Date: 20070116
  Transmission Date: 20070707
  Serious: Yes (Death)
  Sender: FDA-Public Use
  Company Number: 235043

PATIENT
  Age: 86 Year
  Sex: Male

DRUGS (1)
  1. RANIBIZUMAB(RANIBIZUMAB) PWDR + SOLVENT,INJECTION SOLN [Suspect]
     Indication: MACULAR DEGENERATION
     Dosage: 1/MONTH, INTRAVITREAL
     Route: 050

REACTIONS (1)
  - DEATH [None]
